FAERS Safety Report 5304592-X (Version None)
Quarter: 2007Q2

REPORT INFORMATION
  Report Type: 
  Country: None (occurrence: None)
  Receive Date: 20070423
  Receipt Date: 20070412
  Transmission Date: 20071010
  Serious: Yes (Hospitalization)
  Sender: FDA-Public Use
  Company Number: FR-GLAXOSMITHKLINE-B0450687A

PATIENT
  Age: 66 Year
  Sex: Female

DRUGS (2)
  1. SERETIDE [Suspect]
     Route: 055
     Dates: start: 20050615, end: 20051115
  2. NORVIR [Suspect]
     Indication: HIV INFECTION
     Route: 048
     Dates: start: 20031015

REACTIONS (7)
  - ADRENAL INSUFFICIENCY [None]
  - CUSHING'S SYNDROME [None]
  - DRUG INTERACTION [None]
  - MALAISE [None]
  - ORTHOSTATIC HYPOTENSION [None]
  - TACHYCARDIA [None]
  - VESTIBULAR DISORDER [None]
